FAERS Safety Report 6194895-1 (Version None)
Quarter: 2009Q2

REPORT INFORMATION
  Report Type: 
  Country: None (occurrence: None)
  Receive Date: 20090519
  Receipt Date: 20090330
  Transmission Date: 20091009
  Serious: Yes (Other)
  Sender: FDA-Public Use
  Company Number: DE-TEVA-195003ISR

PATIENT
  Sex: Male

DRUGS (1)
  1. TORSEMIDE [Suspect]
     Indication: HYPERTENSION
     Route: 048

REACTIONS (3)
  - CATARACT [None]
  - EYE HAEMORRHAGE [None]
  - GLAUCOMA [None]
